FAERS Safety Report 5126405-1 (Version None)
Quarter: 2006Q3

REPORT INFORMATION
  Report Type: 
  Country: None (occurrence: None)
  Receive Date: 20060828
  Receipt Date: 20060920
  Transmission Date: 20061208
  Serious: Yes (Hospitalization, Other)
  Sender: FDA-Public Use
  Company Number: 27504

PATIENT
  Age: 27 Year
  Sex: Female

DRUGS (4)
  1. FLECAINIDE ACETATE [Suspect]
     Indication: SUPRAVENTRICULAR TACHYCARDIA
     Dosage: SEE IMAGE
     Route: 048
     Dates: start: 20050802, end: 20050816
  2. FLECAINIDE ACETATE [Suspect]
     Indication: SUPRAVENTRICULAR TACHYCARDIA
     Dosage: SEE IMAGE
     Route: 048
     Dates: start: 20050816
  3. PRENATAL VITAMINS [Concomitant]
  4. IRON TABLET [Concomitant]

REACTIONS (3)
  - RASH PRURITIC [None]
  - SYNCOPE [None]
  - THERAPEUTIC RESPONSE DECREASED [None]
